FAERS Safety Report 7819661-X (Version None)
Quarter: 2011Q4

REPORT INFORMATION
  Report Type: 
  Country: None (occurrence: None)
  Receive Date: 20111013
  Receipt Date: 20110927
  Transmission Date: 20120403
  Serious: Yes (Other)
  Sender: FDA-Public Use
  Company Number: PNIS20110010

PATIENT
  Age: 51 Year
  Sex: Male

DRUGS (1)
  1. PREDNISOLONE [Suspect]
     Indication: PEMPHIGUS
     Dosage: 80 MG, 1 IN 1 D, ORAL
     Route: 048

REACTIONS (5)
  - ENDOCARDITIS [None]
  - CHEST PAIN [None]
  - BLOOD CULTURE POSITIVE [None]
  - MITRAL VALVE INCOMPETENCE [None]
  - STAPHYLOCOCCAL INFECTION [None]
